FAERS Safety Report 23880360 (Version 3)
Quarter: 2024Q3

REPORT INFORMATION
  Report Type: Spontaneous
  Country: US (occurrence: US)
  Receive Date: 20240521
  Receipt Date: 20240906
  Transmission Date: 20241017
  Serious: Yes (Other)
  Sender: MARINUS PHARMACEUTICALS
  Company Number: US-MARINUS PHARMACEUTICALS, INC.-MAR2024000080

PATIENT

DRUGS (3)
  1. ZTALMY [Suspect]
     Active Substance: GANAXOLONE
     Indication: Product used for unknown indication
     Dosage: 2 MILLIGRAM, TID
     Route: 048
  2. ZTALMY [Suspect]
     Active Substance: GANAXOLONE
     Dosage: 240 MILLIGRAM, TID
     Route: 048
  3. ZTALMY [Suspect]
     Active Substance: GANAXOLONE
     Dosage: 5.5 MILLILITER, TID
     Route: 048

REACTIONS (1)
  - Change in seizure presentation [Unknown]

NARRATIVE: CASE EVENT DATE: 20240101
